FAERS Safety Report 4922252-1 (Version None)
Quarter: 2006Q1

REPORT INFORMATION
  Report Type: 
  Country: None (occurrence: None)
  Receive Date: 20060224
  Receipt Date: 20051004
  Transmission Date: 20060701
  Serious: Yes (Hospitalization)
  Sender: FDA-Public Use
  Company Number: US-MERCK-0510USA04298

PATIENT
  Age: 52 Year
  Sex: Male
  Weight: 68 kg

DRUGS (13)
  1. VIOXX [Suspect]
     Indication: NECK PAIN
     Route: 048
     Dates: start: 20000911, end: 20010131
  2. VIOXX [Suspect]
     Route: 048
     Dates: start: 20011218
  3. VIOXX [Suspect]
     Route: 048
     Dates: start: 20020729
  4. VIOXX [Suspect]
     Route: 048
     Dates: start: 20020729
  5. VIOXX [Suspect]
     Route: 048
     Dates: start: 20020830
  6. VIOXX [Suspect]
     Route: 048
     Dates: start: 20021214
  7. VIOXX [Suspect]
     Route: 048
     Dates: start: 20031230
  8. VIOXX [Suspect]
     Route: 048
     Dates: start: 20040204
  9. VIOXX [Suspect]
     Route: 048
     Dates: start: 20040308
  10. ACTONEL [Concomitant]
     Indication: OSTEOPOROSIS
     Route: 048
     Dates: start: 20001218, end: 20040730
  11. ASPIRIN [Concomitant]
     Route: 065
  12. FIORICET TABLETS [Concomitant]
     Indication: TENSION HEADACHE
     Route: 048
     Dates: start: 19960125, end: 20030308
  13. NORGESIC (ACETAMINOPHEN (+) ORPHENADRINE CITRATE) [Concomitant]
     Indication: MUSCLE RELAXANT THERAPY
     Route: 048
     Dates: start: 19951024, end: 20040301

REACTIONS (29)
  - ABDOMINAL DISCOMFORT [None]
  - ABDOMINAL PAIN [None]
  - ACUTE MYOCARDIAL INFARCTION [None]
  - ANOREXIA [None]
  - CARDIAC FAILURE CONGESTIVE [None]
  - CHEST PAIN [None]
  - CORONARY ARTERY DISEASE [None]
  - COUGH [None]
  - DIABETES MELLITUS [None]
  - DIVERTICULUM INTESTINAL [None]
  - DYSPNOEA [None]
  - FATIGUE [None]
  - GASTRITIS [None]
  - HYPERSENSITIVITY [None]
  - HYPERSOMNIA [None]
  - HYPERTENSION [None]
  - INSOMNIA [None]
  - KNEE OPERATION [None]
  - MUSCLE SPASMS [None]
  - MUSCULOSKELETAL CHEST PAIN [None]
  - OEDEMA PERIPHERAL [None]
  - PNEUMOTHORAX [None]
  - PROSTATE EXAMINATION ABNORMAL [None]
  - ROTATOR CUFF SYNDROME [None]
  - SKIN INFECTION [None]
  - SPINAL FUSION SURGERY [None]
  - URINARY TRACT INFECTION [None]
  - VIRAL INFECTION [None]
  - VOMITING [None]
